FAERS Safety Report 14642366 (Version 3)
Quarter: 2018Q2

REPORT INFORMATION
  Report Type: Spontaneous
  Country: US (occurrence: US)
  Receive Date: 20180315
  Receipt Date: 20180515
  Transmission Date: 20180711
  Serious: Yes (Other)
  Sender: FDA-Public Use
  Company Number: US-PFIZER INC-2018098808

PATIENT
  Age: 60 Year
  Sex: Male

DRUGS (6)
  1. MORPHINE SULFATE. [Concomitant]
     Active Substance: MORPHINE SULFATE
     Dosage: 3.8 MG, DAILY
     Route: 037
  2. BUPIVACAINE HCL [Suspect]
     Active Substance: BUPIVACAINE HYDROCHLORIDE
     Indication: PAIN
     Dosage: 4.8 MG, DAILY
     Route: 037
  3. MORPHINE SULFATE. [Concomitant]
     Active Substance: MORPHINE SULFATE
     Indication: PAIN
     Dosage: 1.2 MG, DAILY
     Route: 037
  4. BUPIVACAINE HCL [Suspect]
     Active Substance: BUPIVACAINE HYDROCHLORIDE
     Indication: LUMBAR RADICULOPATHY
     Dosage: 3 MG, DAILY
     Route: 037
  5. MORPHINE SULFATE. [Concomitant]
     Active Substance: MORPHINE SULFATE
     Dosage: 6 MG, DAILY
     Route: 037
  6. MORPHINE SULFATE. [Concomitant]
     Active Substance: MORPHINE SULFATE
     Dosage: 3.2 MG, DAILY
     Route: 037

REACTIONS (5)
  - Neurotoxicity [Not Recovered/Not Resolved]
  - Arachnoiditis [Not Recovered/Not Resolved]
  - Paraplegia [Unknown]
  - Myelitis [Not Recovered/Not Resolved]
  - Product use issue [Not Recovered/Not Resolved]
